FAERS Safety Report 9628916 (Version 1)
Quarter: 2013Q4

REPORT INFORMATION
  Report Type: Spontaneous
  Country: IT (occurrence: IT)
  Receive Date: 20131017
  Receipt Date: 20131017
  Transmission Date: 20140711
  Serious: Yes (Other)
  Sender: FDA-Public Use
  Company Number: IT-JNJFOC-20131007039

PATIENT
  Sex: Female

DRUGS (3)
  1. HALOPERIDOL [Suspect]
     Indication: SCHIZOPHRENIA, DISORGANISED TYPE
     Route: 048
  2. HALOPERIDOL [Suspect]
     Indication: SCHIZOPHRENIA, DISORGANISED TYPE
     Route: 048
  3. HALOPERIDOL [Suspect]
     Indication: SCHIZOPHRENIA, DISORGANISED TYPE
     Route: 030

REACTIONS (4)
  - Hypothermia [Unknown]
  - Psychosomatic disease [Unknown]
  - Psychotic disorder [Unknown]
  - Treatment noncompliance [Unknown]
